FAERS Safety Report 19837265 (Version 1)
Quarter: 2021Q3

REPORT INFORMATION
  Report Type: Spontaneous
  Country: US (occurrence: US)
  Receive Date: 20210916
  Receipt Date: 20210916
  Transmission Date: 20211014
  Serious: Yes (Other)
  Sender: FDA-Public Use
  Company Number: US-VALIDUS PHARMACEUTICALS LLC-US-VDP-2021-001248

PATIENT

DRUGS (5)
  1. BUMETANIDE. [Suspect]
     Active Substance: BUMETANIDE
     Indication: FLUID RETENTION
     Dosage: UNK
     Route: 065
  2. TYVASO [Suspect]
     Active Substance: TREPROSTINIL
     Indication: PULMONARY ARTERIAL HYPERTENSION
     Dosage: UNK, INHALATION
     Dates: start: 20210406
  3. TYVASO [Suspect]
     Active Substance: TREPROSTINIL
     Dosage: 18?54 MICROGRAM,QID, INHALATION
     Dates: start: 2021
  4. ELIQUIS [Suspect]
     Active Substance: APIXABAN
     Indication: PRODUCT USED FOR UNKNOWN INDICATION
     Route: 065
  5. SILDENAFIL CITRATE. [Suspect]
     Active Substance: SILDENAFIL CITRATE
     Indication: PRODUCT USED FOR UNKNOWN INDICATION
     Route: 065

REACTIONS (6)
  - Cardiac failure congestive [Unknown]
  - Bone marrow disorder [Unknown]
  - Drug hypersensitivity [Unknown]
  - Pruritus [Unknown]
  - Dry skin [Unknown]
  - Fluid retention [Unknown]

NARRATIVE: CASE EVENT DATE: 2021
